FAERS Safety Report 10046649 (Version 2)
Quarter: 2014Q3

REPORT INFORMATION
  Report Type: Spontaneous
  Country: US (occurrence: None)
  Receive Date: 20140326
  Receipt Date: 20140702
  Transmission Date: 20150326
  Serious: Yes (Hospitalization)
  Sender: FDA-Public Use
  Company Number: US-000729

PATIENT
  Age: 57 Year
  Sex: Female

DRUGS (21)
  1. SOLUTIONS FOR PARENTERAL NUTRITION [Concomitant]
     Active Substance: AMINO ACIDS\DEXTROSE\ELECTROLYTES NOS
  2. PANTOPRAZOLE [Concomitant]
     Active Substance: PANTOPRAZOLE SODIUM
  3. METRONIDAZOLE. [Concomitant]
     Active Substance: METRONIDAZOLE
  4. DILAUDID [Concomitant]
     Active Substance: HYDROMORPHONE HYDROCHLORIDE
  5. FOLIC ACID. [Concomitant]
     Active Substance: FOLIC ACID
  6. GLYCOPYRROLATE. [Concomitant]
     Active Substance: GLYCOPYRROLATE
  7. PROMETHAZINE [Concomitant]
     Active Substance: PROMETHAZINE\PROMETHAZINE HYDROCHLORIDE
  8. GATTEX [Suspect]
     Active Substance: TEDUGLUTIDE\WATER
     Indication: SHORT-BOWEL SYNDROME
     Route: 058
     Dates: start: 201305, end: 20131227
  9. LOSARTAN [Concomitant]
     Active Substance: LOSARTAN
  10. ATORVASTATIN [Concomitant]
     Active Substance: ATORVASTATIN
  11. VITAMIN B12 [Concomitant]
     Active Substance: CYANOCOBALAMIN
  12. LOVENOX [Concomitant]
     Active Substance: ENOXAPARIN SODIUM
  13. HYDROCODONE [Concomitant]
     Active Substance: HYDROCODONE
  14. VENLAFAXINE [Concomitant]
     Active Substance: VENLAFAXINE HYDROCHLORIDE
  15. VITAMIN D3 [Concomitant]
     Active Substance: CHOLECALCIFEROL
  16. PRENATAL VITAMINS [Concomitant]
     Active Substance: VITAMINS
  17. CHOLESTYRAMINE. [Concomitant]
     Active Substance: CHOLESTYRAMINE
  18. PROTONIX [Concomitant]
     Active Substance: PANTOPRAZOLE SODIUM
  19. MEDROL [Suspect]
     Active Substance: METHYLPREDNISOLONE
     Indication: HYPOAESTHESIA
  20. AQUADEKS [Concomitant]
  21. CODEINE SULFATE. [Concomitant]
     Active Substance: CODEINE SULFATE

REACTIONS (7)
  - Back pain [None]
  - Gastrointestinal stoma output decreased [None]
  - Cough [None]
  - Oropharyngeal pain [None]
  - Abdominal pain [None]
  - Dyspepsia [None]
  - Faecal volume increased [None]

NARRATIVE: CASE EVENT DATE: 20130612
